FAERS Safety Report 6700072-5 (Version None)
Quarter: 2010Q2

REPORT INFORMATION
  Report Type: 
  Country: None (occurrence: None)
  Receive Date: 20100427
  Receipt Date: 20100427
  Transmission Date: 20101027
  Serious: Yes (Other)
  Sender: FDA-Public Use
  Company Number: None

PATIENT
  Age: 57 Year
  Sex: Female
  Weight: 91.6266 kg

DRUGS (1)
  1. HEPARIN [Suspect]
     Indication: THROMBOSIS PROPHYLAXIS
     Dosage: EVERY 4-6 HRS IM
     Route: 030
     Dates: start: 20100414, end: 20100416

REACTIONS (2)
  - INJECTION SITE INFLAMMATION [None]
  - PAIN IN EXTREMITY [None]
